FAERS Safety Report 5586173-6 (Version None)
Quarter: 2008Q1

REPORT INFORMATION
  Report Type: 
  Country: None (occurrence: None)
  Receive Date: 20080107
  Receipt Date: 20071221
  Transmission Date: 20080703
  Serious: Yes (Hospitalization)
  Sender: FDA-Public Use
  Company Number: 231505J07USA

PATIENT
  Age: 37 Year
  Sex: Male

DRUGS (4)
  1. REBIF [Suspect]
     Indication: MULTIPLE SCLEROSIS
     Dosage: 44 MCG, 3 IN 1 WEEKS, SUBCUTANEOUS
     Route: 058
     Dates: start: 20040507
  2. PROZAC [Concomitant]
  3. XANAX [Concomitant]
  4. CYMBALTA [Concomitant]

REACTIONS (7)
  - FAMILY STRESS [None]
  - FEAR [None]
  - INJECTION SITE ERYTHEMA [None]
  - INJECTION SITE REACTION [None]
  - ORAL INTAKE REDUCED [None]
  - SUICIDAL IDEATION [None]
  - TEARFULNESS [None]
